FAERS Safety Report 7341416-3 (Version None)
Quarter: 2011Q1

REPORT INFORMATION
  Report Type: 
  Country: None (occurrence: None)
  Receive Date: 20110309
  Receipt Date: 20110304
  Transmission Date: 20110831
  Serious: Yes (Life-Threatening, Hospitalization, Disabling)
  Sender: FDA-Public Use
  Company Number: US-MERCK-1103USA00871

PATIENT
  Age: 86 Year
  Sex: Female

DRUGS (4)
  1. DIURETIC (UNSPECIFIED) [Concomitant]
     Route: 065
  2. JANUVIA [Suspect]
     Indication: DIABETES MELLITUS
     Route: 048
     Dates: start: 20100901
  3. ACTOS [Concomitant]
     Route: 065
  4. JANUVIA [Suspect]
     Route: 048

REACTIONS (1)
  - CARDIAC FAILURE [None]
